FAERS Safety Report 4686080-7 (Version None)
Quarter: 2005Q2

REPORT INFORMATION
  Report Type: 
  Country: None (occurrence: None)
  Receive Date: 20050609
  Receipt Date: 19900502
  Transmission Date: 20051028
  Serious: Yes (Other)
  Sender: FDA-Public Use
  Company Number: 199020234HAG

PATIENT
  Age: 67 Year
  Sex: Male

DRUGS (3)
  1. FRUSEMIDE [Suspect]
     Indication: LEFT VENTRICULAR FAILURE
  2. AMIODARONE HYDROCHLORIDE [Suspect]
     Indication: ARRHYTHMIA
     Route: 048
     Dates: start: 19880901, end: 19890717
  3. CAPTOPRIL [Suspect]
     Indication: LEFT VENTRICULAR FAILURE

REACTIONS (2)
  - HYPERTHYROIDISM [None]
  - PULMONARY FIBROSIS [None]
